FAERS Safety Report 18803313 (Version 2)
Quarter: 2021Q3

REPORT INFORMATION
  Report Type: Report from Study
  Country: JP (occurrence: JP)
  Receive Date: 20210128
  Receipt Date: 20210703
  Transmission Date: 20211014
  Serious: Yes (Death, Life-Threatening, Hospitalization)
  Sender: FDA-Public Use
  Company Number: JP-JNJFOC-A-CH2018-171481

PATIENT
  Age: 71 Year
  Sex: Male
  Weight: 58 kg

DRUGS (18)
  1. UPTRAVI [Suspect]
     Active Substance: SELEXIPAG
     Indication: PULMONARY ARTERIAL HYPERTENSION
     Dosage: 0.2 MG, BID
     Route: 048
     Dates: start: 20180304, end: 20180307
  2. UPTRAVI [Suspect]
     Active Substance: SELEXIPAG
     Dosage: 0.4 MG, BID
     Route: 048
     Dates: start: 20180308, end: 20180314
  3. UPTRAVI [Suspect]
     Active Substance: SELEXIPAG
     Dosage: 0.4 MG, BID
     Route: 048
     Dates: start: 20180417, end: 20180524
  4. DIART [AZOSEMIDE] [Concomitant]
     Active Substance: AZOSEMIDE
     Indication: CARDIAC FAILURE
     Dosage: 30 MG, UNK
     Dates: end: 20180606
  5. CELLCEPT [Concomitant]
     Active Substance: MYCOPHENOLATE MOFETIL\MYCOPHENOLATE MOFETIL HYDROCHLORIDE
     Indication: SCLERODERMA
     Dosage: 1000 MG, QD
     Dates: end: 20180606
  6. DAIPHEN [Concomitant]
     Active Substance: SULFAMETHOXAZOLE\TRIMETHOPRIM
     Indication: SCLERODERMA
     Dosage: 1 UNK, UNK
     Dates: end: 20180420
  7. UPTRAVI [Suspect]
     Active Substance: SELEXIPAG
     Dosage: 0.8 MG, BID
     Route: 048
     Dates: start: 20180324, end: 20180416
  8. VASOLAN [Concomitant]
     Indication: ATRIAL FIBRILLATION
     Dosage: 120 MG, UNK
     Dates: start: 20180517, end: 20180606
  9. EDIROL [Concomitant]
     Active Substance: ELDECALCITOL
     Indication: OSTEOPOROSIS
     Dosage: 0.75 UNK, UNK
     Dates: end: 20180420
  10. PREDONINE [Concomitant]
     Active Substance: PREDNISOLONE
     Indication: SCLERODERMA
     Dosage: 6.5 MG, QD
     Dates: end: 20180606
  11. LANSOPRAZOLE. [Concomitant]
     Active Substance: LANSOPRAZOLE
     Indication: GASTRITIS
     Dosage: 15 MG, UNK
     Dates: end: 20180606
  12. SAMSCA [Concomitant]
     Active Substance: TOLVAPTAN
     Indication: CARDIAC FAILURE
     Dosage: 7.5 MG, UNK
     Dates: end: 20180606
  13. WARFARIN POTASSIUM [Concomitant]
     Active Substance: WARFARIN POTASSIUM
     Indication: ATRIAL FIBRILLATION
     Dosage: UNK
     Dates: start: 20180528, end: 20180530
  14. UPTRAVI [Suspect]
     Active Substance: SELEXIPAG
     Dosage: 0.6 MG, BID
     Route: 048
     Dates: start: 20180315, end: 20180323
  15. UPTRAVI [Suspect]
     Active Substance: SELEXIPAG
     Dosage: 0.2 MG, BID
     Route: 048
     Dates: start: 20180525, end: 20180606
  16. AMIODARONE HYDROCHLORIDE. [Concomitant]
     Active Substance: AMIODARONE HYDROCHLORIDE
     Indication: ATRIAL FIBRILLATION
     Dosage: 200 MG, UNK
     Dates: start: 20180517, end: 20180606
  17. NEXIUM [Concomitant]
     Active Substance: ESOMEPRAZOLE MAGNESIUM
     Indication: GASTRITIS
     Dosage: 20 MG, UNK
     Dates: end: 20180420
  18. ADCIRCA [Concomitant]
     Active Substance: TADALAFIL
     Indication: PULMONARY ARTERIAL HYPERTENSION
     Dosage: 40 MG, QD
     Dates: end: 20180606

REACTIONS (13)
  - Condition aggravated [Fatal]
  - Atrial tachycardia [Recovered/Resolved]
  - Pulmonary arterial hypertension [Fatal]
  - Hypotension [Fatal]
  - Sputum retention [Recovering/Resolving]
  - Bronchitis [Not Recovered/Not Resolved]
  - Atrial fibrillation [Fatal]
  - Pneumothorax [Recovered/Resolved]
  - Hypoxia [Recovered/Resolved]
  - Pleural effusion [Recovering/Resolving]
  - Metabolic acidosis [Fatal]
  - Pneumonia [Not Recovered/Not Resolved]
  - Diarrhoea [Recovered/Resolved]

NARRATIVE: CASE EVENT DATE: 20180307
